FAERS Safety Report 7160563-2 (Version None)
Quarter: 2010Q4

REPORT INFORMATION
  Report Type: 
  Country: None (occurrence: None)
  Receive Date: 20101214
  Receipt Date: 20101210
  Transmission Date: 20110411
  Serious: Yes (Other)
  Sender: FDA-Public Use
  Company Number: US-PFIZER INC-2010153679

PATIENT
  Sex: Female
  Weight: 62 kg

DRUGS (6)
  1. CHANTIX [Suspect]
     Indication: SMOKING CESSATION THERAPY
     Dosage: 0.5 MG, 1X/DAY
     Route: 048
     Dates: start: 20101101
  2. CHANTIX [Suspect]
     Dosage: 1 MG, 2X/DAY
     Dates: start: 20101101
  3. NEXIUM [Concomitant]
     Indication: GASTROOESOPHAGEAL REFLUX DISEASE
     Dosage: UNK
  4. NEXIUM [Concomitant]
     Indication: OESOPHAGITIS ULCERATIVE
  5. SEROQUEL [Concomitant]
     Indication: BIPOLAR DISORDER
     Dosage: UNK
  6. MELATONIN [Concomitant]
     Indication: SLEEP DISORDER
     Dosage: UNK

REACTIONS (3)
  - ARTHRALGIA [None]
  - JOINT SWELLING [None]
  - WRIST FRACTURE [None]
